FAERS Safety Report 6528376-X (Version None)
Quarter: 2010Q1

REPORT INFORMATION
  Report Type: 
  Country: None (occurrence: None)
  Receive Date: 20100106
  Receipt Date: 20091231
  Transmission Date: 20100710
  Serious: Yes (Hospitalization, Other)
  Sender: FDA-Public Use
  Company Number: US-JNJFOC-20100100217

PATIENT
  Sex: Male
  Weight: 122.47 kg

DRUGS (4)
  1. DURAGESIC-100 [Suspect]
     Indication: ARTHRALGIA
     Route: 062
  2. DURAGESIC-100 [Suspect]
     Route: 062
  3. DILAUDID [Concomitant]
     Indication: BREAKTHROUGH PAIN
     Route: 048
  4. PROTONIX [Concomitant]
     Indication: GASTRIC DISORDER
     Route: 048

REACTIONS (3)
  - ARTHROPATHY [None]
  - EUPHORIC MOOD [None]
  - INCORRECT DRUG ADMINISTRATION RATE [None]
